FAERS Safety Report 12603676 (Version 3)
Quarter: 2016Q3

REPORT INFORMATION
  Report Type: Report from Study
  Country: US (occurrence: US)
  Receive Date: 20160728
  Receipt Date: 20160808
  Transmission Date: 20161109
  Serious: Yes (Hospitalization, Other)
  Sender: FDA-Public Use
  Company Number: US-BIOGEN-2016BI00269368

PATIENT
  Age: 73 Year
  Sex: Female

DRUGS (1)
  1. AVONEX [Suspect]
     Active Substance: INTERFERON BETA-1A
     Indication: MULTIPLE SCLEROSIS
     Route: 030
     Dates: start: 19961113

REACTIONS (9)
  - Diarrhoea [Not Recovered/Not Resolved]
  - Blood pressure systolic increased [Unknown]
  - Hypertension [Unknown]
  - Muscular weakness [Not Recovered/Not Resolved]
  - Infectious colitis [Unknown]
  - Presyncope [Unknown]
  - Headache [Unknown]
  - Hypotension [Recovered/Resolved]
  - Cardiac pacemaker insertion [Unknown]

NARRATIVE: CASE EVENT DATE: 2011
